FAERS Safety Report 6930339-7 (Version None)
Quarter: 2010Q3

REPORT INFORMATION
  Report Type: 
  Country: None (occurrence: None)
  Receive Date: 20100818
  Receipt Date: 20100712
  Transmission Date: 20110219
  Serious: Yes (Other)
  Sender: FDA-Public Use
  Company Number: US-PFIZER INC-2010042940

PATIENT
  Sex: Female
  Weight: 51.701 kg

DRUGS (1)
  1. GEODON [Suspect]
     Indication: BIPOLAR I DISORDER
     Dosage: UNK
     Dates: start: 20080101

REACTIONS (10)
  - AFFECTIVE DISORDER [None]
  - AMYOTROPHIC LATERAL SCLEROSIS [None]
  - CELL-MEDIATED IMMUNE DEFICIENCY [None]
  - DYSTONIA [None]
  - ILEUS [None]
  - MEMORY IMPAIRMENT [None]
  - MULTIPLE SCLEROSIS [None]
  - RASH [None]
  - SUICIDAL IDEATION [None]
  - VITAMIN D DEFICIENCY [None]
